FAERS Safety Report 8853782 (Version 1)
Quarter: 2012Q4

REPORT INFORMATION
  Report Type: 
  Country: CH (occurrence: CH)
  Receive Date: 20121023
  Receipt Date: 20121023
  Transmission Date: 20130627
  Serious: Yes (Other)
  Sender: FDA-Public Use
  Company Number: CH-ELI_LILLY_AND_COMPANY-CH201210004257

PATIENT
  Age: 47 Year
  Sex: Male
  Weight: 121 kg

DRUGS (11)
  1. ZYPREXA [Suspect]
     Dosage: 5 mg, qd
     Route: 048
     Dates: start: 20120518, end: 20120519
  2. ZYPREXA [Suspect]
     Dosage: 10 mg, qd
     Route: 048
     Dates: start: 20120520, end: 20120521
  3. ZYPREXA [Suspect]
     Dosage: 15 mg, qd
     Route: 048
     Dates: start: 20120522, end: 20120524
  4. AMLODIPIN                          /00972401/ [Concomitant]
     Dosage: 15 mg, qd
     Route: 048
  5. VILDAGLIPTIN [Concomitant]
     Dosage: 50 mg, qd
     Route: 048
  6. ARIPIPRAZOLE [Concomitant]
     Dosage: 10 mg, qd
     Route: 048
     Dates: end: 20120519
  7. ARIPIPRAZOLE [Concomitant]
     Dosage: 5 mg, qd
     Route: 048
     Dates: start: 20120520, end: 20120522
  8. RISPERIDON [Concomitant]
     Dosage: 2 mg, qd
     Route: 048
     Dates: start: 20120516, end: 20120518
  9. TORASEMID [Concomitant]
     Dosage: 10 mg, qd
     Route: 048
     Dates: start: 20120520, end: 20120522
  10. TORASEMID [Concomitant]
     Dosage: 20 mg, qd
     Route: 048
     Dates: start: 20120523
  11. METFORMIN [Concomitant]
     Dosage: 500 mg, qd
     Route: 048
     Dates: start: 20120511

REACTIONS (2)
  - Erysipelas [Recovered/Resolved]
  - Rash [Recovered/Resolved]
